FAERS Safety Report 8003634-0 (Version None)
Quarter: 2011Q4

REPORT INFORMATION
  Report Type: 
  Country: None (occurrence: None)
  Receive Date: 20111222
  Receipt Date: 20111214
  Transmission Date: 20120403
  Serious: Yes (Death)
  Sender: FDA-Public Use
  Company Number: TR-ACTELION-A-CH2011-58431

PATIENT
  Age: 69 Year
  Sex: Female

DRUGS (4)
  1. CORTICOSTEROIDS [Concomitant]
  2. VENTAVIS [Concomitant]
     Indication: PULMONARY ARTERIAL HYPERTENSION
  3. TRACLEER [Suspect]
     Indication: PULMONARY ARTERIAL HYPERTENSION
     Dosage: UNK , UNK
     Route: 048
  4. ASPIRIN [Concomitant]

REACTIONS (1)
  - RESPIRATORY FAILURE [None]
